FAERS Safety Report 9739490 (Version 1)
Quarter: 2013Q4

REPORT INFORMATION
  Report Type: Spontaneous
  Country: US (occurrence: None)
  Receive Date: 20131206
  Receipt Date: 20131206
  Transmission Date: 20140711
  Serious: Yes (Hospitalization)
  Sender: FDA-Public Use
  Company Number: DL2013-0911

PATIENT
  Age: 20 Year
  Sex: Female

DRUGS (2)
  1. MIFEPRISTONE [Suspect]
     Indication: ABORTION INDUCED
     Route: 048
     Dates: start: 20131001
  2. MISOPROSTOL TABLETS, 200 MCG [Suspect]
     Dosage: 800 MCG, BUCCAL
     Route: 002

REACTIONS (3)
  - Haemorrhage [None]
  - Dizziness [None]
  - Syncope [None]
